FAERS Safety Report 12995581 (Version 1)
Quarter: 2016Q4

REPORT INFORMATION
  Report Type: Spontaneous
  Country: GB (occurrence: GB)
  Receive Date: 20161202
  Receipt Date: 20161202
  Transmission Date: 20170207
  Serious: Yes (Other)
  Sender: FDA-Public Use
  Company Number: GB-GLAXOSMITHKLINE-GB2016174431

PATIENT
  Age: 53 Year
  Sex: Female
  Weight: 63.5 kg

DRUGS (3)
  1. VOLTAROL [Suspect]
     Active Substance: DICLOFENAC SODIUM
     Indication: POSTOPERATIVE ANALGESIA
     Dosage: UNK
     Route: 042
     Dates: start: 20161112, end: 20161112
  2. OXYCODONE [Concomitant]
     Active Substance: OXYCODONE
     Dosage: UNK
  3. GABAPENTIN. [Concomitant]
     Active Substance: GABAPENTIN
     Dosage: UNK

REACTIONS (7)
  - Dizziness [Not Recovered/Not Resolved]
  - Flushing [Recovering/Resolving]
  - Tinnitus [Not Recovered/Not Resolved]
  - Diarrhoea [Recovering/Resolving]
  - Hypertension [Not Recovered/Not Resolved]
  - Anxiety [Recovering/Resolving]
  - Headache [Not Recovered/Not Resolved]

NARRATIVE: CASE EVENT DATE: 20161112
